FAERS Safety Report 5163891-5 (Version None)
Quarter: 2006Q4

REPORT INFORMATION
  Report Type: 
  Country: None (occurrence: None)
  Receive Date: 20061204
  Receipt Date: 20061124
  Transmission Date: 20070319
  Serious: Yes (Hospitalization, Other)
  Sender: FDA-Public Use
  Company Number: US-BRISTOL-MYERS SQUIBB COMPANY-13591052

PATIENT
  Age: 73 Year
  Sex: Male
  Weight: 102 kg

DRUGS (5)
  1. COUMADIN [Suspect]
  2. ONE-A-DAY [Suspect]
     Route: 048
     Dates: start: 20030601
  3. ANTIBIOTIC [Suspect]
     Dates: start: 20030801
  4. CITRIC ACID [Suspect]
  5. EPOETIN ALFA [Concomitant]
     Route: 030

REACTIONS (12)
  - DEHYDRATION [None]
  - DIZZINESS [None]
  - FUNGAL INFECTION [None]
  - HAND FRACTURE [None]
  - INTERNATIONAL NORMALISED RATIO FLUCTUATION [None]
  - LOSS OF CONSCIOUSNESS [None]
  - MALAISE [None]
  - NASOPHARYNGITIS [None]
  - NEPHROLITHIASIS [None]
  - RENAL DISORDER [None]
  - SKIN LACERATION [None]
  - SLEEP APNOEA SYNDROME [None]
